FAERS Safety Report 9765878 (Version 1)
Quarter: 2013Q4

REPORT INFORMATION
  Report Type: Spontaneous
  Country: US (occurrence: US)
  Receive Date: 20131217
  Receipt Date: 20131217
  Transmission Date: 20140711
  Serious: No
  Sender: FDA-Public Use
  Company Number: US-BIOGENIDEC-2013BI116041

PATIENT
  Age: 30 Year
  Sex: Female

DRUGS (1)
  1. TECFIDERA [Suspect]
     Indication: MULTIPLE SCLEROSIS
     Route: 048
     Dates: start: 201309

REACTIONS (7)
  - Vision blurred [Unknown]
  - Diplopia [Unknown]
  - Paraesthesia [Unknown]
  - Pain of skin [Unknown]
  - Underdose [Unknown]
  - Pruritus [Unknown]
  - Skin burning sensation [Unknown]
